FAERS Safety Report 7225713-8 (Version None)
Quarter: 2011Q1

REPORT INFORMATION
  Report Type: 
  Country: None (occurrence: None)
  Receive Date: 20110113
  Receipt Date: 20101208
  Transmission Date: 20110831
  Serious: No
  Sender: FDA-Public Use
  Company Number: US-NOVEN-10US001427

PATIENT
  Sex: Female

DRUGS (2)
  1. FENTANYL-100 [Suspect]
     Indication: BACK PAIN
     Dosage: 100 UG,/HR Q3DAYS
     Route: 062
     Dates: start: 20101201
  2. UNKNOWN [Concomitant]

REACTIONS (3)
  - SOMNOLENCE [None]
  - PRODUCT QUALITY ISSUE [None]
  - NAUSEA [None]
